FAERS Safety Report 16153942 (Version 19)
Quarter: 2023Q2

REPORT INFORMATION
  Report Type: Spontaneous
  Country: US (occurrence: US)
  Receive Date: 20190403
  Receipt Date: 20230505
  Transmission Date: 20230722
  Serious: No
  Sender: FDA-Public Use
  Company Number: US-PFIZER INC-2019141368

PATIENT
  Age: 67 Year
  Sex: Female

DRUGS (5)
  1. EUCRISA [Suspect]
     Active Substance: CRISABOROLE
     Indication: Dermatitis atopic
     Dosage: APPLY TWICE A DAY WITH VASELINE TO AFFECTED AREAS AND GROIN AREA
  2. EUCRISA [Suspect]
     Active Substance: CRISABOROLE
     Dosage: USE IT MORE THAN TWICE A DAY
  3. EUCRISA [Suspect]
     Active Substance: CRISABOROLE
     Dosage: APPLY 2X/DAY WITH VASELINE
     Route: 061
  4. EUCRISA [Suspect]
     Active Substance: CRISABOROLE
     Dosage: APPLY TWICE A DAY WITH VASELINE TO AFFECTED AREAS AND GROIN AREA
  5. PARAFFIN [Suspect]
     Active Substance: PARAFFIN
     Dosage: UNK

REACTIONS (3)
  - Application site pain [Recovering/Resolving]
  - Gastrooesophageal reflux disease [Unknown]
  - Off label use [Unknown]
